FAERS Safety Report 14181281 (Version 2)
Quarter: 2017Q4

REPORT INFORMATION
  Report Type: Spontaneous
  Country: US (occurrence: US)
  Receive Date: 20171112
  Receipt Date: 20171210
  Transmission Date: 20180321
  Serious: No
  Sender: FDA-Public Use
  Company Number: US-ASTRAZENECA-2017SF13522

PATIENT
  Age: 29984 Day
  Sex: Female

DRUGS (1)
  1. SYMBICORT [Suspect]
     Active Substance: BUDESONIDE\FORMOTEROL FUMARATE DIHYDRATE
     Dosage: 160/4.5 MCG, UNKNOWN FREQUENCY UNKNOWN
     Route: 055

REACTIONS (2)
  - Hypersensitivity [Unknown]
  - Product packaging issue [Unknown]

NARRATIVE: CASE EVENT DATE: 20171104
